FAERS Safety Report 14404197 (Version 2)
Quarter: 2018Q1

REPORT INFORMATION
  Report Type: Spontaneous
  Country: CA (occurrence: CA)
  Receive Date: 20180117
  Receipt Date: 20180206
  Transmission Date: 20180509
  Serious: Yes (Hospitalization, Other)
  Sender: FDA-Public Use
  Company Number: CA-SHIRE-CA201800896

PATIENT

DRUGS (1)
  1. REVESTIVE [Suspect]
     Active Substance: TEDUGLUTIDE
     Indication: SHORT-BOWEL SYNDROME
     Dosage: 0.05 MG/KG, 1X/DAY:QD
     Route: 065

REACTIONS (3)
  - Vasculitis [Unknown]
  - Subarachnoid haemorrhage [Unknown]
  - Pericarditis [Unknown]

NARRATIVE: CASE EVENT DATE: 201706
